FAERS Safety Report 5455039-4 (Version None)
Quarter: 2007Q3

REPORT INFORMATION
  Report Type: 
  Country: None (occurrence: None)
  Receive Date: 20070918
  Receipt Date: 20070911
  Transmission Date: 20080115
  Serious: Yes (Hospitalization)
  Sender: FDA-Public Use
  Company Number: PHBS2007ID15078

PATIENT
  Age: 44 Year
  Sex: Male
  Weight: 60 kg

DRUGS (6)
  1. EXJADE [Suspect]
     Indication: IRON OVERLOAD
     Dosage: 500 MG, BID
     Dates: start: 20070815, end: 20070913
  2. MEROPENEM [Concomitant]
  3. CALCIUM CARBONATE [Concomitant]
  4. FOLIC ACID [Concomitant]
  5. NORVASK [Concomitant]
  6. INTERFERON [Concomitant]

REACTIONS (5)
  - HAEMOGLOBIN DECREASED [None]
  - LEUKOPENIA [None]
  - PANCYTOPENIA [None]
  - PNEUMONIA [None]
  - THROMBOCYTOPENIA [None]
